FAERS Safety Report 9453982 (Version 5)
Quarter: 2014Q2

REPORT INFORMATION
  Report Type: Spontaneous
  Country: US (occurrence: US)
  Receive Date: 20130812
  Receipt Date: 20140606
  Transmission Date: 20141212
  Serious: Yes (Hospitalization, Other)
  Sender: FDA-Public Use
  Company Number: US-009507513-1308USA003206

PATIENT
  Sex: Female
  Weight: 50.79 kg

DRUGS (3)
  1. FOSAMAX [Suspect]
     Indication: OSTEOPOROSIS
     Dosage: 10 MG, QD
     Route: 048
     Dates: start: 1995
  2. FOSAMAX [Suspect]
     Dosage: 70 MG, QW
     Route: 048
     Dates: start: 19990216, end: 2009
  3. ALENDRONATE SODIUM [Suspect]
     Indication: OSTEOPOROSIS
     Dosage: 70 MG, QW
     Route: 048
     Dates: start: 2009, end: 20110729

REACTIONS (14)
  - Intramedullary rod insertion [Unknown]
  - Femur fracture [Recovering/Resolving]
  - Groin pain [Unknown]
  - Wrist fracture [Unknown]
  - Wrist fracture [Unknown]
  - Hypertension [Unknown]
  - Blood cholesterol increased [Unknown]
  - Arthritis [Unknown]
  - Fall [Unknown]
  - Hypothyroidism [Unknown]
  - Major depression [Unknown]
  - Dyslipidaemia [Unknown]
  - Osteoarthritis [Unknown]
  - Tonsillectomy [Unknown]
